FAERS Safety Report 9613126 (Version 1)
Quarter: 2013Q4

REPORT INFORMATION
  Report Type: Spontaneous
  Country: PL (occurrence: PL)
  Receive Date: 20131010
  Receipt Date: 20131010
  Transmission Date: 20140711
  Serious: Yes (Other)
  Sender: FDA-Public Use
  Company Number: PL-ROCHE-1285724

PATIENT
  Age: 45 Year
  Sex: Male

DRUGS (6)
  1. MABTHERA [Suspect]
     Indication: CHRONIC LYMPHOCYTIC LEUKAEMIA
     Route: 065
     Dates: end: 201306
  2. ENARENAL [Concomitant]
  3. AMLOZEK [Concomitant]
  4. DEXAVEN (POLAND) [Concomitant]
     Route: 042
  5. ENCORTON [Concomitant]
  6. SOLU-MEDROL [Concomitant]

REACTIONS (2)
  - Leukocytosis [Unknown]
  - Disease progression [Unknown]
